FAERS Safety Report 7217394-4 (Version None)
Quarter: 2011Q1

REPORT INFORMATION
  Report Type: 
  Country: None (occurrence: None)
  Receive Date: 20110110
  Receipt Date: 20101228
  Transmission Date: 20110831
  Serious: Yes (Other)
  Sender: FDA-Public Use
  Company Number: PHHY2010US86451

PATIENT
  Sex: Female

DRUGS (1)
  1. TASIGNA [Suspect]
     Indication: CHRONIC MYELOID LEUKAEMIA
     Dosage: 4000 MG, DAILY
     Route: 048
     Dates: start: 20101119

REACTIONS (2)
  - ELECTROCARDIOGRAM ABNORMAL [None]
  - HYPOMAGNESAEMIA [None]
